FAERS Safety Report 8440220-2 (Version None)
Quarter: 2012Q2

REPORT INFORMATION
  Report Type: 
  Country: None (occurrence: None)
  Receive Date: 20120615
  Receipt Date: 20120604
  Transmission Date: 20120825
  Serious: Yes (Other)
  Sender: FDA-Public Use
  Company Number: RU-ROCHE-1074560

PATIENT
  Age: 43 Year
  Sex: Male

DRUGS (1)
  1. XENICAL [Suspect]
     Indication: OVERWEIGHT
     Route: 048
     Dates: start: 20120601, end: 20120604

REACTIONS (4)
  - PYREXIA [None]
  - GASTROINTESTINAL PAIN [None]
  - DIARRHOEA [None]
  - CHILLS [None]
